FAERS Safety Report 7419864-2 (Version None)
Quarter: 2011Q2

REPORT INFORMATION
  Report Type: 
  Country: None (occurrence: None)
  Receive Date: 20110413
  Receipt Date: 20110413
  Transmission Date: 20111010
  Serious: No
  Sender: FDA-Public Use
  Company Number: None

PATIENT
  Age: 68 Year
  Sex: Male
  Weight: 86.1834 kg

DRUGS (2)
  1. TOBRAMYCIN SULFATE [Suspect]
     Indication: CHALAZION
     Dosage: 1 DROP 4X DAY
     Dates: start: 20110408
  2. TOBRAMYCIN SULFATE [Suspect]
     Indication: CHALAZION
     Dosage: 1 DROP 4X DAY
     Dates: start: 20110131

REACTIONS (2)
  - DIPLOPIA [None]
  - VISION BLURRED [None]
